FAERS Safety Report 17785758 (Version 1)
Quarter: 2020Q2

REPORT INFORMATION
  Report Type: Spontaneous
  Country: CN (occurrence: CN)
  Receive Date: 20200514
  Receipt Date: 20200514
  Transmission Date: 20200714
  Serious: Yes (Other)
  Sender: FDA-Public Use
  Company Number: CN-ROCHE-2598658

PATIENT
  Age: 53 Year
  Sex: Female

DRUGS (5)
  1. AVASTIN [Suspect]
     Active Substance: BEVACIZUMAB
     Dosage: DAY 1
     Route: 041
     Dates: start: 20200321
  2. AVASTIN [Suspect]
     Active Substance: BEVACIZUMAB
     Dosage: DAY 1
     Route: 041
     Dates: start: 20200507
  3. GEFITINIB. [Concomitant]
     Active Substance: GEFITINIB
     Route: 048
     Dates: start: 20200220, end: 20200315
  4. AVASTIN [Suspect]
     Active Substance: BEVACIZUMAB
     Indication: LUNG ADENOCARCINOMA
     Dosage: DAY 1
     Route: 041
     Dates: start: 20200225
  5. AVASTIN [Suspect]
     Active Substance: BEVACIZUMAB
     Dosage: DAY 1
     Route: 041
     Dates: start: 20200416

REACTIONS (2)
  - Blood pressure increased [Recovered/Resolved]
  - Liver injury [Unknown]

NARRATIVE: CASE EVENT DATE: 20200315
